FAERS Safety Report 9417456 (Version 1)
Quarter: 2013Q3

REPORT INFORMATION
  Report Type: Spontaneous
  Country: US (occurrence: US)
  Receive Date: 20130724
  Receipt Date: 20130724
  Transmission Date: 20140515
  Serious: Yes (Other)
  Sender: FDA-Public Use
  Company Number: US-TEVA-420659USA

PATIENT
  Age: 32 Year
  Sex: Female
  Weight: 54.48 kg

DRUGS (5)
  1. PLAN B ONE-STEP [Suspect]
     Indication: POST COITAL CONTRACEPTION
     Dosage: 1.5 MILLIGRAM DAILY;
     Route: 048
     Dates: start: 201306, end: 201306
  2. PLAN B ONE-STEP [Suspect]
     Dosage: 1.5 MILLIGRAM DAILY;
     Route: 048
     Dates: start: 20130712, end: 20130712
  3. METOCLOPRAMIDE [Concomitant]
     Indication: GASTROOESOPHAGEAL SPHINCTER INSUFFICIENCY
  4. OMEPRAZOLE [Concomitant]
     Indication: GASTROOESOPHAGEAL SPHINCTER INSUFFICIENCY
  5. LORAZEPAM [Concomitant]
     Indication: ANXIETY

REACTIONS (6)
  - Pregnancy after post coital contraception [Unknown]
  - Menstruation irregular [Recovered/Resolved]
  - Dysmenorrhoea [Recovered/Resolved]
  - Breast tenderness [Recovered/Resolved]
  - Metrorrhagia [Recovered/Resolved]
  - Drug ineffective [Unknown]
